FAERS Safety Report 9661327 (Version 2)
Quarter: 2013Q4

REPORT INFORMATION
  Report Type: Spontaneous
  Country: JP (occurrence: JP)
  Receive Date: 20131031
  Receipt Date: 20131204
  Transmission Date: 20140711
  Serious: Yes (Death)
  Sender: FDA-Public Use
  Company Number: JP-MILLENNIUM PHARMACEUTICALS, INC.-2013JNJ000834

PATIENT
  Sex: 0

DRUGS (2)
  1. VELCADE [Suspect]
     Indication: AMYLOIDOSIS
     Route: 065
  2. DEXAMETHASONE [Concomitant]
     Indication: AMYLOIDOSIS

REACTIONS (2)
  - Death [Fatal]
  - Off label use [Unknown]
